FAERS Safety Report 5562460-2 (Version None)
Quarter: 2007Q4

REPORT INFORMATION
  Report Type: 
  Country: None (occurrence: None)
  Receive Date: 20071215
  Receipt Date: 20070620
  Transmission Date: 20080405
  Serious: No
  Sender: FDA-Public Use
  Company Number: US-AMGEN-KDL230591

PATIENT
  Sex: Female
  Weight: 84.4 kg

DRUGS (2)
  1. PROCRIT [Suspect]
     Indication: RENAL FAILURE CHRONIC
     Route: 058
     Dates: start: 20070509, end: 20070606
  2. ARANESP [Suspect]
     Dates: start: 20070417

REACTIONS (1)
  - RASH [None]
